FAERS Safety Report 4718299-0 (Version None)
Quarter: 2005Q3

REPORT INFORMATION
  Report Type: 
  Country: None (occurrence: None)
  Receive Date: 20050719
  Receipt Date: 20050415
  Transmission Date: 20060218
  Serious: Yes (Hospitalization)
  Sender: FDA-Public Use
  Company Number: 2005062655

PATIENT
  Age: 81 Year
  Sex: Male
  Weight: 79.3795 kg

DRUGS (10)
  1. CELEBREX [Suspect]
     Indication: ILL-DEFINED DISORDER
     Dosage: ORAL
     Route: 048
  2. ALBUTEROL SULFATE HFA [Concomitant]
  3. IPRATROPIUM BROMIDE [Concomitant]
  4. DILTIAZEM HYDROCHLORIDE [Concomitant]
  5. PHENYTOIN SODIUM [Concomitant]
  6. INSULIN GLARGINE (INSULIN GLARGINE) [Concomitant]
  7. METHYLPREDNISOLONE [Concomitant]
  8. ROBITUSSIN-DM (DEXTROMETHORPHAN HYDROBROMIDE, ETHANOL, GUAIFENESIN) [Concomitant]
  9. VICODIN [Concomitant]
  10. CEFTRIAXONE [Concomitant]

REACTIONS (2)
  - DRUG HYPERSENSITIVITY [None]
  - PNEUMONIA [None]
